FAERS Safety Report 7423408-9 (Version None)
Quarter: 2011Q2

REPORT INFORMATION
  Report Type: 
  Country: None (occurrence: None)
  Receive Date: 20110419
  Receipt Date: 20110406
  Transmission Date: 20111010
  Serious: Yes (Other)
  Sender: FDA-Public Use
  Company Number: PHHY2009CA17705

PATIENT
  Sex: Female

DRUGS (3)
  1. SANDOSTATIN LAR [Suspect]
     Dosage: 30 MG, EVERY 4 WEEKS
     Route: 030
     Dates: end: 20090630
  2. SANDOSTATIN LAR [Suspect]
     Dosage: 40 MG, QMO
     Route: 030
  3. SANDOSTATIN LAR [Suspect]
     Indication: ACROMEGALY
     Dosage: 30 MG, ONCE A MONTH
     Route: 030
     Dates: start: 20080414

REACTIONS (12)
  - ARTHRALGIA [None]
  - HEADACHE [None]
  - SENSATION OF PRESSURE [None]
  - FATIGUE [None]
  - INJECTION SITE PAIN [None]
  - BLOOD GROWTH HORMONE ABNORMAL [None]
  - FLATULENCE [None]
  - DIARRHOEA [None]
  - GASTROINTESTINAL DISORDER [None]
  - ABDOMINAL DISTENSION [None]
  - ASTHENIA [None]
  - IMMUNOGLOBULINS INCREASED [None]
